FAERS Safety Report 6838090-9 (Version None)
Quarter: 2010Q3

REPORT INFORMATION
  Report Type: 
  Country: None (occurrence: None)
  Receive Date: 20100713
  Receipt Date: 20070530
  Transmission Date: 20110219
  Serious: No
  Sender: FDA-Public Use
  Company Number: US-PFIZER INC-2007046388

PATIENT
  Sex: Female
  Weight: 63.636 kg

DRUGS (3)
  1. CHANTIX [Suspect]
     Indication: SMOKING CESSATION THERAPY
     Dates: start: 20070511
  2. VITAMINS [Concomitant]
     Indication: BLOOD IRON DECREASED
  3. ANTIBIOTICS [Concomitant]
     Indication: URINARY TRACT INFECTION
     Dates: end: 20070501

REACTIONS (4)
  - ARTHRITIS [None]
  - MUSCULOSKELETAL STIFFNESS [None]
  - NAUSEA [None]
  - POOR QUALITY SLEEP [None]
